FAERS Safety Report 5642730-X (Version None)
Quarter: 2008Q1

REPORT INFORMATION
  Report Type: 
  Country: None (occurrence: None)
  Receive Date: 20080226
  Receipt Date: 20080220
  Transmission Date: 20080703
  Serious: Yes (Death)
  Sender: FDA-Public Use
  Company Number: EC-JNJFOC-20080204773

PATIENT
  Age: 64 Year
  Sex: Male
  Weight: 68 kg

DRUGS (1)
  1. DECITABINE (DECITABINE) LYOPHILIZED POWDER [Suspect]
     Indication: MYELODYSPLASTIC SYNDROME
     Dosage: 25 MG/M2, INTRAVENOUS
     Route: 042
     Dates: start: 20071022, end: 20071024

REACTIONS (2)
  - ALTERED STATE OF CONSCIOUSNESS [None]
  - SUBARACHNOID HAEMORRHAGE [None]
